FAERS Safety Report 7199491-5 (Version None)
Quarter: 2010Q4

REPORT INFORMATION
  Report Type: 
  Country: None (occurrence: None)
  Receive Date: 20101228
  Receipt Date: 20101215
  Transmission Date: 20110411
  Serious: Yes (Other)
  Sender: FDA-Public Use
  Company Number: PHEH2010US03875

PATIENT
  Sex: Male

DRUGS (2)
  1. AREDIA [Suspect]
     Indication: OSTEOPOROSIS
  2. ZOMETA [Suspect]
     Indication: OSTEOPOROSIS
     Dosage: UNK

REACTIONS (3)
  - INJURY [None]
  - OSTEONECROSIS OF JAW [None]
  - PAIN [None]
